FAERS Safety Report 5737325-3 (Version None)
Quarter: 2008Q2

REPORT INFORMATION
  Report Type: 
  Country: None (occurrence: None)
  Receive Date: 20080514
  Receipt Date: 20080512
  Transmission Date: 20081010
  Serious: Yes (Hospitalization)
  Sender: FDA-Public Use
  Company Number: US-ASTRAZENECA-2008UW09752

PATIENT
  Age: 65 Year
  Sex: Female

DRUGS (3)
  1. SYMBICORT [Suspect]
     Indication: WHEEZING
     Dosage: 160/4.5 MCG
     Route: 055
  2. SYMBICORT [Suspect]
     Indication: ASTHMA
     Dosage: 160/4.5 MCG
     Route: 055
  3. ANTIHYPERTENSIVES [Concomitant]

REACTIONS (2)
  - DYSPHAGIA [None]
  - ORAL CANDIDIASIS [None]
